FAERS Safety Report 8474826-1 (Version None)
Quarter: 2012Q2

REPORT INFORMATION
  Report Type: 
  Country: None (occurrence: None)
  Receive Date: 20120621
  Receipt Date: 20120606
  Transmission Date: 20120825
  Serious: Yes (Life-Threatening, Hospitalization)
  Sender: FDA-Public Use
  Company Number: TCI2012A02960

PATIENT
  Age: 67 Year
  Sex: Male

DRUGS (4)
  1. CALCIUM CHANNEL BLOCKERS [Concomitant]
  2. ACTOS [Suspect]
     Indication: TYPE 2 DIABETES MELLITUS
     Dosage: 15 MG (15 MG,1 D) PER ORAL
     Route: 048
     Dates: start: 20091225, end: 20110719
  3. INSULINS AND ANALOGUES [Concomitant]
  4. ANGIOTENSIN II ANTAGONISTS [Concomitant]

REACTIONS (1)
  - RECTAL CANCER [None]
